FAERS Safety Report 7191373-8 (Version None)
Quarter: 2010Q4

REPORT INFORMATION
  Report Type: 
  Country: None (occurrence: None)
  Receive Date: 20101223
  Receipt Date: 20100815
  Transmission Date: 20110411
  Serious: No
  Sender: FDA-Public Use
  Company Number: US-AMGEN-TCS431543

PATIENT

DRUGS (1)
  1. ENBREL [Suspect]
     Indication: ANKYLOSING SPONDYLITIS
     Dosage: 50 MG, QWK
     Route: 058
     Dates: start: 20100611, end: 20100620

REACTIONS (9)
  - ANKYLOSING SPONDYLITIS [None]
  - DISEASE PROGRESSION [None]
  - EPISTAXIS [None]
  - INSOMNIA [None]
  - PRODUCTIVE COUGH [None]
  - RASH ERYTHEMATOUS [None]
  - REFLUX OESOPHAGITIS [None]
  - SINUSITIS [None]
  - SPUTUM DISCOLOURED [None]
